FAERS Safety Report 5812527-6 (Version None)
Quarter: 2008Q3

REPORT INFORMATION
  Report Type: 
  Country: None (occurrence: None)
  Receive Date: 20080715
  Receipt Date: 20070823
  Transmission Date: 20090109
  Serious: Yes (Other)
  Sender: FDA-Public Use
  Company Number: 2007-163350-NL

PATIENT
  Age: 65 Year
  Sex: Male

DRUGS (2)
  1. TICE BCG [Suspect]
     Indication: BLADDER CANCER
     Dosage: DF INTRAVESICAL
     Route: 043
     Dates: start: 20050607, end: 20050701
  2. TICE BCG [Suspect]
     Indication: BLADDER CANCER
     Dosage: DF INTRAVESICAL, THREE WEEKS TREATMENT STARTING AT 10-NOV-2005
     Route: 043
     Dates: start: 20051110

REACTIONS (1)
  - TUBERCULOSIS [None]
